FAERS Safety Report 7534088-6 (Version None)
Quarter: 2011Q2

REPORT INFORMATION
  Report Type: 
  Country: None (occurrence: None)
  Receive Date: 20110608
  Receipt Date: 20060823
  Transmission Date: 20111010
  Serious: Yes (Other)
  Sender: FDA-Public Use
  Company Number: PHHO2006NZ13939

PATIENT
  Sex: Female

DRUGS (3)
  1. LITHIUM CARBONATE [Concomitant]
  2. CLOZAPINE [Suspect]
     Indication: SCHIZOPHRENIA
     Dates: start: 19960930, end: 20060807
  3. PAROXETINE HCL [Concomitant]

REACTIONS (1)
  - GASTROINTESTINAL CARCINOMA [None]
